FAERS Safety Report 19578746 (Version 1)
Quarter: 2021Q3

REPORT INFORMATION
  Report Type: Spontaneous
  Country: CN (occurrence: CN)
  Receive Date: 20210720
  Receipt Date: 20210720
  Transmission Date: 20211014
  Serious: Yes (Other)
  Sender: FDA-Public Use
  Company Number: CN-ROCHE-2869965

PATIENT
  Age: 48 Year
  Sex: Female

DRUGS (9)
  1. HERCEPTIN [Suspect]
     Active Substance: TRASTUZUMAB
     Indication: INVASIVE BREAST CARCINOMA
     Dosage: ON 11 AUG 2020 AND 01 SEP 2020, THP REGIMEN, ON DAY 1
     Route: 065
  2. CYCLOPHOSPHAMIDE. [Concomitant]
     Active Substance: CYCLOPHOSPHAMIDE
     Indication: INVASIVE BREAST CARCINOMA
     Dosage: EC REGIMEN, ON DAY 1
     Dates: start: 20200428
  3. DOCETAXEL. [Concomitant]
     Active Substance: DOCETAXEL
     Indication: INVASIVE BREAST CARCINOMA
     Dosage: ON 29 JUN 2020 AND 21 JUL 2020, THP REGIMEN, ON DAY 1
  4. EPIRUBICIN [Concomitant]
     Active Substance: EPIRUBICIN
     Indication: INVASIVE BREAST CARCINOMA
     Dosage: EC REGIMEN, ON DAY 1
     Dates: start: 20200428
  5. KADCYLA [Suspect]
     Active Substance: ADO-TRASTUZUMAB EMTANSINE
     Indication: INVASIVE BREAST CARCINOMA
     Route: 065
  6. EPIRUBICIN [Concomitant]
     Active Substance: EPIRUBICIN
     Dosage: ON 14 MAY 2020, 28 MAY 2020 AND 14 JUN 2020, EC REGIMEN, ON DAY 1
  7. DOCETAXEL. [Concomitant]
     Active Substance: DOCETAXEL
     Dosage: ON 11 AUG 2020 AND 01 SEP 2020, THP REGIMEN, ON DAY 1
  8. PERJETA [Suspect]
     Active Substance: PERTUZUMAB
     Indication: INVASIVE BREAST CARCINOMA
     Dosage: ON 11 AUG 2020 AND 01 SEP 2020, THP REGIMEN, ON DAY 1
     Route: 065
  9. CYCLOPHOSPHAMIDE. [Concomitant]
     Active Substance: CYCLOPHOSPHAMIDE
     Dosage: ON 14 MAY 2020, 28 MAY 2020 AND 14 JUN 2020, EC REGIMEN, ON DAY 1

REACTIONS (1)
  - White blood cell count decreased [Recovered/Resolved]

NARRATIVE: CASE EVENT DATE: 2020
